FAERS Safety Report 12545020 (Version 3)
Quarter: 2016Q3

REPORT INFORMATION
  Report Type: Spontaneous
  Country: US (occurrence: US)
  Receive Date: 20160711
  Receipt Date: 20160830
  Transmission Date: 20161109
  Serious: Yes (Other)
  Sender: FDA-Public Use
  Company Number: US-BAYER-2016-134510

PATIENT
  Age: 38 Year
  Sex: Female
  Weight: 82.36 kg

DRUGS (10)
  1. CYTOTEC [Concomitant]
     Active Substance: MISOPROSTOL
     Indication: ANALGESIC THERAPY
     Dosage: 400 ?G, ONCE
     Route: 067
     Dates: start: 20160202
  2. BETADINE [Concomitant]
     Active Substance: POVIDONE-IODINE
     Indication: INFECTION PROPHYLAXIS
     Dosage: UNK
     Dates: start: 20160802, end: 20160802
  3. DOXYCYCLINE HYCLATE. [Concomitant]
     Active Substance: DOXYCYCLINE HYCLATE
     Dosage: 1 DF, QD
     Route: 048
     Dates: start: 20150902
  4. MIRENA [Suspect]
     Active Substance: LEVONORGESTREL
     Indication: CONTRACEPTION
     Dosage: 20 MCG/24HR, CONT
     Route: 015
  5. MIRENA [Suspect]
     Active Substance: LEVONORGESTREL
     Indication: CONTRACEPTION
     Dosage: 20 MCG/24HR, CONT
     Route: 015
     Dates: start: 20160802
  6. SUMATRIPTAN. [Concomitant]
     Active Substance: SUMATRIPTAN
     Indication: HEADACHE
     Dosage: UNK1 TABLET BY MOUTH AT ONSET OF HEADACHE MAY TAKE ONE MORE IN 30 MINUTES IF NOT RELIEF
     Route: 048
     Dates: start: 20160121
  7. BETADINE [Concomitant]
     Active Substance: POVIDONE-IODINE
     Indication: INFECTION PROPHYLAXIS
     Dosage: UNK
     Dates: start: 20160203, end: 20160203
  8. SYNTHROID [Concomitant]
     Active Substance: LEVOTHYROXINE SODIUM
     Dosage: 1 DF, QD
     Route: 048
     Dates: start: 20140522
  9. MIRENA [Suspect]
     Active Substance: LEVONORGESTREL
     Indication: MENORRHAGIA
     Dosage: 20 MCG/24HR, CONT
     Route: 015
     Dates: start: 201101, end: 20160203
  10. MIRENA [Suspect]
     Active Substance: LEVONORGESTREL
     Indication: CONTRACEPTION
     Dosage: 20 MCG/24HR, CONT
     Route: 015
     Dates: start: 20160203, end: 20160802

REACTIONS (15)
  - Genital haemorrhage [None]
  - Vaginal haemorrhage [Not Recovered/Not Resolved]
  - Device expulsion [None]
  - Migraine [None]
  - Diarrhoea [None]
  - Libido decreased [None]
  - Fatigue [None]
  - Complication of device insertion [None]
  - Stress urinary incontinence [None]
  - Urogenital disorder [None]
  - Genital haemorrhage [None]
  - Blood pressure increased [None]
  - Endometrial atrophy [None]
  - Dysfunctional uterine bleeding [None]
  - Procedural pain [None]

NARRATIVE: CASE EVENT DATE: 2016
